FAERS Safety Report 8130814-6 (Version None)
Quarter: 2012Q1

REPORT INFORMATION
  Report Type: 
  Country: None (occurrence: None)
  Receive Date: 20120213
  Receipt Date: 20120202
  Transmission Date: 20120608
  Serious: No
  Sender: FDA-Public Use
  Company Number: US-BIOGENIDEC-2012BI004297

PATIENT
  Sex: Female

DRUGS (4)
  1. AVONEX [Suspect]
     Indication: MULTIPLE SCLEROSIS
     Route: 030
     Dates: start: 20110101
  2. BACLOFEN [Concomitant]
     Indication: TREMOR
  3. BACLOFEN [Concomitant]
     Indication: MULTIPLE SCLEROSIS
  4. NEURONTIN [Concomitant]
     Indication: PAIN

REACTIONS (5)
  - FATIGUE [None]
  - SLOW SPEECH [None]
  - MULTIPLE SCLEROSIS RELAPSE [None]
  - STRESS [None]
  - AMNESIA [None]
